FAERS Safety Report 8059033-9 (Version None)
Quarter: 2012Q1

REPORT INFORMATION
  Report Type: 
  Country: None (occurrence: None)
  Receive Date: 20120120
  Receipt Date: 20110502
  Transmission Date: 20120608
  Serious: No
  Sender: FDA-Public Use
  Company Number: US-BAUSCH-2011BL002836

PATIENT
  Age: 86 Year
  Sex: Female

DRUGS (1)
  1. ALAWAY [Suspect]
     Indication: SEASONAL ALLERGY
     Route: 047
     Dates: start: 20110429, end: 20110429

REACTIONS (4)
  - THROAT IRRITATION [None]
  - ORAL DISCOMFORT [None]
  - EYE IRRITATION [None]
  - NAUSEA [None]
